FAERS Safety Report 21171770 (Version 1)
Quarter: 2022Q3

REPORT INFORMATION
  Report Type: Spontaneous
  Country: US (occurrence: US)
  Receive Date: 20220804
  Receipt Date: 20220804
  Transmission Date: 20221027
  Serious: Yes (Other)
  Sender: FDA-Public Use
  Company Number: US-PFIZER INC-202201029480

PATIENT
  Age: 77 Year
  Sex: Female
  Weight: 68.04 kg

DRUGS (1)
  1. PAXLOVID [Suspect]
     Active Substance: NIRMATRELVIR\RITONAVIR
     Indication: COVID-19 treatment
     Dosage: UNK

REACTIONS (13)
  - Blood pressure increased [Unknown]
  - Dysgeusia [Unknown]
  - Malaise [Unknown]
  - Fatigue [Unknown]
  - Discomfort [Unknown]
  - Dry mouth [Unknown]
  - Restlessness [Unknown]
  - Erythema [Unknown]
  - Ocular hyperaemia [Unknown]
  - Pruritus [Unknown]
  - Flatulence [Unknown]
  - Feeling abnormal [Unknown]
  - Gait disturbance [Unknown]
